FAERS Safety Report 8986706 (Version 1)
Quarter: 2012Q4

REPORT INFORMATION
  Report Type: Spontaneous
  Country: US (occurrence: None)
  Receive Date: 20121219
  Receipt Date: 20121219
  Transmission Date: 20130627
  Serious: Yes (Other)
  Sender: FDA-Public Use
  Company Number: None

PATIENT
  Age: 31 Year
  Sex: Female
  Weight: 90.72 kg

DRUGS (2)
  1. SEROQUEL [Suspect]
     Indication: BIPOLAR DISORDER
     Route: 048
     Dates: start: 20020301, end: 20020831
  2. RISPERDAL [Suspect]
     Route: 048
     Dates: start: 20120914, end: 20120930

REACTIONS (8)
  - Hallucinations, mixed [None]
  - Delusion [None]
  - Drug ineffective [None]
  - Anxiety [None]
  - Insomnia [None]
  - Confusional state [None]
  - Suicidal ideation [None]
  - Loss of employment [None]
